FAERS Safety Report 8994450 (Version 1)
Quarter: 2013Q1

REPORT INFORMATION
  Report Type: Spontaneous
  Country: US (occurrence: US)
  Receive Date: 20130102
  Receipt Date: 20130102
  Transmission Date: 20140127
  Serious: No
  Sender: FDA-Public Use
  Company Number: US-AMGEN-USASP2012080038

PATIENT
  Age: 40 Year
  Sex: Female

DRUGS (2)
  1. ENBREL [Suspect]
     Indication: BEHCET^S SYNDROME
     Dosage: 50 MG, QWK
     Dates: start: 20121001
  2. METHOTREXATE [Concomitant]
     Dosage: 0.3 ML, QWK
     Dates: start: 2010

REACTIONS (1)
  - Injection site pain [Not Recovered/Not Resolved]
